FAERS Safety Report 16896451 (Version 2)
Quarter: 2019Q4

REPORT INFORMATION
  Report Type: Report from Study
  Country: JP (occurrence: JP)
  Receive Date: 20191008
  Receipt Date: 20191017
  Transmission Date: 20200122
  Serious: Yes (Death, Hospitalization)
  Sender: FDA-Public Use
  Company Number: JP-PFIZER INC-2019363944

PATIENT
  Age: 62 Year
  Sex: Male

DRUGS (1)
  1. LORLATINIB [Suspect]
     Active Substance: LORLATINIB
     Indication: LUNG NEOPLASM MALIGNANT
     Dosage: 100 MG, DAILY
     Route: 048
     Dates: start: 20190706, end: 20190919

REACTIONS (5)
  - Hypertriglyceridaemia [Unknown]
  - Asphyxia [Fatal]
  - Haemoptysis [Fatal]
  - Neoplasm progression [Fatal]
  - Blood cholesterol increased [Unknown]

NARRATIVE: CASE EVENT DATE: 20190803
